FAERS Safety Report 15659964 (Version 2)
Quarter: 2025Q3

REPORT INFORMATION
  Report Type: Spontaneous
  Country: GB (occurrence: GB)
  Receive Date: 20181127
  Receipt Date: 20250718
  Transmission Date: 20251021
  Serious: Yes (Other)
  Sender: AUROBINDO
  Company Number: GB-AUROBINDO-AUR-APL-2018-055735

PATIENT
  Age: 84 Year
  Sex: Male

DRUGS (6)
  1. TAMSULOSIN [Suspect]
     Active Substance: TAMSULOSIN
     Indication: Benign prostatic hyperplasia
     Route: 065
  2. DIAMOX SEQUELS [Concomitant]
     Active Substance: ACETAZOLAMIDE
     Indication: Intraocular pressure increased
     Route: 048
  3. TIMOLOL [Concomitant]
     Active Substance: TIMOLOL
     Indication: Intraocular pressure increased
     Route: 065
  4. TRUSOPT [Concomitant]
     Active Substance: DORZOLAMIDE HYDROCHLORIDE
     Indication: Intraocular pressure increased
     Route: 065
  5. LATANOPROST [Concomitant]
     Active Substance: LATANOPROST
     Indication: Intraocular pressure increased
     Route: 065
  6. TRAVATAN [Concomitant]
     Active Substance: TRAVOPROST
     Indication: Intraocular pressure increased
     Route: 065

REACTIONS (4)
  - Iris adhesions [Recovering/Resolving]
  - Angle closure glaucoma [Recovering/Resolving]
  - Iatrogenic injury [Recovering/Resolving]
  - Floppy iris syndrome [Recovering/Resolving]
